FAERS Safety Report 18959297 (Version 1)
Quarter: 2021Q1

REPORT INFORMATION
  Report Type: Report from Study
  Country: None (occurrence: US)
  Receive Date: 20210302
  Receipt Date: 20210302
  Transmission Date: 20210420
  Serious: Yes (Other)
  Sender: FDA-Public Use
  Company Number: US-COEPTIS PHARMACEUTICALS, INC.-COE-2021-000024

PATIENT

DRUGS (8)
  1. THALIDOMIDE [Suspect]
     Active Substance: THALIDOMIDE
     Indication: MEDULLOBLASTOMA RECURRENT
     Route: 048
  2. ETOPOSIDE. [Suspect]
     Active Substance: ETOPOSIDE
     Route: 037
  3. ETOPOSIDE. [Suspect]
     Active Substance: ETOPOSIDE
     Indication: MEDULLOBLASTOMA RECURRENT
     Route: 048
  4. CYTARABINE. [Suspect]
     Active Substance: CYTARABINE
     Indication: MEDULLOBLASTOMA RECURRENT
     Route: 037
  5. FENOBRATE [Suspect]
     Active Substance: FENOFIBRATE
     Indication: MEDULLOBLASTOMA RECURRENT
     Route: 048
  6. BEVACIZUMAB. [Suspect]
     Active Substance: BEVACIZUMAB
     Indication: MEDULLOBLASTOMA RECURRENT
  7. CELECOXIB. [Suspect]
     Active Substance: CELECOXIB
     Indication: MEDULLOBLASTOMA RECURRENT
     Route: 048
  8. CYCLOPHOSPHAMIDE. [Suspect]
     Active Substance: CYCLOPHOSPHAMIDE
     Indication: MEDULLOBLASTOMA RECURRENT
     Route: 048

REACTIONS (1)
  - Pulmonary toxicity [Unknown]
